FAERS Safety Report 10984215 (Version 1)
Quarter: 2015Q2

REPORT INFORMATION
  Report Type: Spontaneous
  Country: US (occurrence: US)
  Receive Date: 20150403
  Receipt Date: 20150403
  Transmission Date: 20150821
  Serious: Yes (Other)
  Sender: FDA-Public Use
  Company Number: US-RB PHARMACEUTICALS LIMITED-RB-077588-2015

PATIENT
  Sex: Female

DRUGS (1)
  1. BUPRENORPHINE/NALOXONE [Suspect]
     Active Substance: BUPRENORPHINE\NALOXONE
     Indication: DRUG DEPENDENCE
     Dosage: UNK
     Route: 065

REACTIONS (6)
  - Stress [Unknown]
  - Laceration [Unknown]
  - Drug ineffective [Recovered/Resolved]
  - Drug withdrawal syndrome [Unknown]
  - Self injurious behaviour [Recovered/Resolved]
  - Drug dependence [Unknown]
